FAERS Safety Report 9193520 (Version 1)
Quarter: 2013Q1

REPORT INFORMATION
  Report Type: Spontaneous
  Country: JP (occurrence: JP)
  Receive Date: 20130327
  Receipt Date: 20130327
  Transmission Date: 20140127
  Serious: Yes (Other)
  Sender: FDA-Public Use
  Company Number: JP-PFIZER INC-2013096873

PATIENT
  Sex: Male

DRUGS (2)
  1. LIPITOR [Suspect]
     Dosage: UNK
     Route: 048
  2. AMARYL [Concomitant]
     Dosage: UNK
     Route: 048

REACTIONS (3)
  - Blindness [Recovered/Resolved]
  - Blood glucose increased [Unknown]
  - Feeling cold [Recovering/Resolving]
